FAERS Safety Report 11786756 (Version 2)
Quarter: 2016Q1

REPORT INFORMATION
  Report Type: Spontaneous
  Country: CH (occurrence: CH)
  Receive Date: 20151130
  Receipt Date: 20160226
  Transmission Date: 20160525
  Serious: Yes (Other)
  Sender: FDA-Public Use
  Company Number: CH-PFIZER INC-2015410856

PATIENT
  Age: 24 Year
  Sex: Female

DRUGS (8)
  1. MIFEGYNE [Suspect]
     Active Substance: MIFEPRISTONE
     Indication: ABORTION INDUCED
     Dosage: 200 MG, UNK (TOTAL)
     Route: 048
     Dates: start: 20150723, end: 20150723
  2. ITINEROL B6 [Concomitant]
     Dosage: 50 MG, 4X/DAY
     Route: 048
     Dates: start: 20150723, end: 20150723
  3. DULCOLAX NOS [Concomitant]
     Active Substance: BISACODYL OR DOCUSATE SODIUM
     Dosage: 1 DF, UNK (1 DOSE FORM TOTAL)
     Route: 048
     Dates: start: 20151007, end: 20151007
  4. CYTOTEC [Suspect]
     Active Substance: MISOPROSTOL
     Indication: ABORTION INDUCED
     Dosage: 800 UG, UNK (TOTAL)
     Route: 048
     Dates: start: 20150723, end: 20150723
  5. CO-DAFALGAN [Concomitant]
     Active Substance: ACETAMINOPHEN\CODEINE PHOSPHATE
     Dosage: 1 DF, 4X/DAY (500 MG/ 30 MG)
     Route: 048
     Dates: start: 20150723, end: 20150723
  6. RHOPHYLAC [Concomitant]
     Active Substance: HUMAN RHO(D) IMMUNE GLOBULIN
     Dosage: 1 DF, UNK (1 DOSE FORM TOTAL)
     Route: 065
     Dates: start: 20150723, end: 20150723
  7. CYTOTEC [Suspect]
     Active Substance: MISOPROSTOL
     Indication: OFF LABEL USE
  8. BRUFEN [Concomitant]
     Active Substance: IBUPROFEN
     Dosage: 600 MG, 4X/DAY
     Route: 048
     Dates: start: 20150723, end: 20150723

REACTIONS (2)
  - Post procedural haemorrhage [Unknown]
  - Drug ineffective for unapproved indication [Unknown]

NARRATIVE: CASE EVENT DATE: 20150723
